FAERS Safety Report 17507379 (Version 1)
Quarter: 2020Q1

REPORT INFORMATION
  Report Type: Spontaneous
  Country: US (occurrence: US)
  Receive Date: 20200306
  Receipt Date: 20200306
  Transmission Date: 20200409
  Serious: No
  Sender: FDA-Public Use
  Company Number: US-UCBSA-2019019974

PATIENT
  Age: 33 Year
  Sex: Female

DRUGS (1)
  1. BRIVIACT [Suspect]
     Active Substance: BRIVARACETAM
     Indication: EPILEPSY

REACTIONS (6)
  - Anxiety [Unknown]
  - Myalgia [Unknown]
  - Drug ineffective [Unknown]
  - Disorientation [Unknown]
  - Dizziness [Unknown]
  - Middle insomnia [Unknown]
